FAERS Safety Report 9353208 (Version 3)
Quarter: 2013Q3

REPORT INFORMATION
  Report Type: Spontaneous
  Country: US (occurrence: US)
  Receive Date: 20130618
  Receipt Date: 20130710
  Transmission Date: 20140515
  Serious: No
  Sender: FDA-Public Use
  Company Number: US-PFIZER INC-2013178338

PATIENT
  Age: 64 Year
  Sex: Female
  Weight: 59.41 kg

DRUGS (5)
  1. IBUPROFEN [Suspect]
     Indication: SPINAL FRACTURE
     Dosage: UNK
  2. TYLENOL [Suspect]
     Indication: HEADACHE
     Dosage: UNK
     Dates: end: 201306
  3. NORVASC [Concomitant]
     Indication: HYPERTENSION
     Dosage: 2.5 MG, TWO TIMES A DAY
  4. CALCIUM [Concomitant]
     Indication: HEART RATE IRREGULAR
     Dosage: UNK
  5. DIOVAN [Concomitant]
     Indication: HYPERTENSION
     Dosage: 160 MG, DAILY

REACTIONS (5)
  - Abdominal discomfort [Unknown]
  - Hepatic function abnormal [Unknown]
  - Blood test abnormal [Unknown]
  - Drug intolerance [Unknown]
  - Drug hypersensitivity [Unknown]
